FAERS Safety Report 5138382-8 (Version None)
Quarter: 2006Q4

REPORT INFORMATION
  Report Type: 
  Country: None (occurrence: None)
  Receive Date: 20061030
  Receipt Date: 20060206
  Transmission Date: 20070319
  Serious: Yes (Other)
  Sender: FDA-Public Use
  Company Number: US-GLAXOSMITHKLINE-A0593907A

PATIENT
  Sex: Female

DRUGS (5)
  1. ADVAIR HFA [Suspect]
     Indication: ASTHMA
     Route: 055
  2. PREDNISONE TAB [Suspect]
  3. DECADRON [Suspect]
  4. UNSPECIFIED MEDICATION [Suspect]
  5. ANTIBIOTIC [Suspect]

REACTIONS (4)
  - ASTHENIA [None]
  - ASTHMA [None]
  - HEART RATE IRREGULAR [None]
  - TREMOR [None]
